FAERS Safety Report 10244315 (Version 1)
Quarter: 2014Q2

REPORT INFORMATION
  Report Type: Spontaneous
  Country: SG (occurrence: None)
  Receive Date: 20140616
  Receipt Date: 20140616
  Transmission Date: 20141212
  Serious: Yes (Other)
  Sender: FDA-Public Use
  Company Number: SYM-2014-21833

PATIENT
  Age: 28 Year
  Sex: Female

DRUGS (4)
  1. DOXYCYCLINE (DOXYCYCLINE) [Suspect]
     Indication: VAGINAL DISCHARGE
     Route: 048
     Dates: start: 20140425
  2. DOXYCYCLINE (DOXYCYCLINE) [Suspect]
     Indication: URINARY TRACT INFECTION
     Route: 048
     Dates: start: 20140425
  3. METRONIDAZOLE (METRONIDAZOLE) [Suspect]
     Indication: VAGINAL DISCHARGE
     Dosage: 1 TIME STAT
     Route: 048
     Dates: start: 20140425
  4. METRONIDAZOLE (METRONIDAZOLE) [Suspect]
     Indication: URINARY TRACT INFECTION
     Dosage: 1 TIME STAT
     Route: 048
     Dates: start: 20140425

REACTIONS (2)
  - Rash maculo-papular [None]
  - Pruritus [None]
